FAERS Safety Report 5712993-0 (Version None)
Quarter: 2008Q2

REPORT INFORMATION
  Report Type: 
  Country: None (occurrence: None)
  Receive Date: 20080418
  Receipt Date: 20080403
  Transmission Date: 20081010
  Serious: Yes (Life-Threatening, Hospitalization)
  Sender: FDA-Public Use
  Company Number: 2008040007

PATIENT
  Age: 69 Year
  Sex: Female
  Weight: 80.7403 kg

DRUGS (16)
  1. SOMA [Suspect]
     Indication: BACK PAIN
     Dosage: 2800 MG (700 MG, 4 IN 1 D), ORAL
     Route: 048
     Dates: start: 19920101, end: 20050301
  2. EXEMESTANE [Suspect]
     Indication: BREAST CANCER
     Dosage: 25 MG (25 MG, 1 IN 1 D), ORAL
     Route: 048
     Dates: start: 20020201
  3. TYLENOL WITH CODEINE NO 4 [Concomitant]
  4. PROTONIX [Concomitant]
  5. GLUCOPHAGE [Concomitant]
  6. CARDIZEM CD [Concomitant]
  7. DIGOXIN [Concomitant]
  8. WARFARIN SODIUM [Concomitant]
  9. RESTORIL [Concomitant]
  10. ACTONEL [Concomitant]
  11. LASIX [Concomitant]
  12. NIFEREX [Concomitant]
  13. POTASSIUM CHLORIDE [Concomitant]
  14. TRAZODONE HCL [Concomitant]
  15. VITAMIN CAP [Concomitant]
  16. CALCET PLUS [Concomitant]

REACTIONS (5)
  - FALL [None]
  - INTERNATIONAL NORMALISED RATIO INCREASED [None]
  - LOSS OF CONSCIOUSNESS [None]
  - PROTHROMBIN TIME PROLONGED [None]
  - SUBDURAL HAEMATOMA [None]
